FAERS Safety Report 8817132 (Version 1)
Quarter: 2012Q4

REPORT INFORMATION
  Report Type: Spontaneous
  Country: US (occurrence: None)
  Receive Date: 20121003
  Receipt Date: 20121003
  Transmission Date: 20130627
  Serious: Yes (Other)
  Sender: FDA-Public Use
  Company Number: None

PATIENT
  Age: 52 Year
  Sex: Female
  Weight: 66.68 kg

DRUGS (6)
  1. METHOCARBAMOL [Suspect]
     Indication: PAIN
     Dosage: 1 tablet every 6 hours w/ water
     Dates: start: 20120525, end: 20120527
  2. METHOCARBAMOL [Suspect]
     Indication: MUSCLE RELAXANT THERAPY
     Dosage: 1 tablet every 6 hours w/ water
     Dates: start: 20120525, end: 20120527
  3. METHOCARBAMOL [Suspect]
     Indication: FALL
     Dosage: 1 tablet every 6 hours w/ water
     Dates: start: 20120525, end: 20120527
  4. TRAMADOL HCL [Suspect]
     Indication: PAIN
     Dosage: 1 tablet every 6 hours  w/ water
     Dates: start: 20120525, end: 20120527
  5. TRAMADOL HCL [Suspect]
     Indication: MUSCLE RELAXANT THERAPY
     Dosage: 1 tablet every 6 hours  w/ water
     Dates: start: 20120525, end: 20120527
  6. TRAMADOL HCL [Suspect]
     Indication: FALL
     Dosage: 1 tablet every 6 hours  w/ water
     Dates: start: 20120525, end: 20120527

REACTIONS (1)
  - Pruritus generalised [None]
